FAERS Safety Report 25410330 (Version 1)
Quarter: 2025Q2

REPORT INFORMATION
  Report Type: Spontaneous
  Country: US (occurrence: US)
  Receive Date: 20250608
  Receipt Date: 20250608
  Transmission Date: 20250717
  Serious: Yes (Death, Hospitalization)
  Sender: COHERUS
  Company Number: US-COHERUS BIOSCIENCES, INC-2024-COH-US001243

PATIENT

DRUGS (1)
  1. LOQTORZI [Suspect]
     Active Substance: TORIPALIMAB-TPZI
     Indication: Product used for unknown indication

REACTIONS (2)
  - Death [Fatal]
  - Hospitalisation [Unknown]

NARRATIVE: CASE EVENT DATE: 20240914
